FAERS Safety Report 14213114 (Version 1)
Quarter: 2017Q4

REPORT INFORMATION
  Report Type: Spontaneous
  Country: FR (occurrence: FR)
  Receive Date: 20171122
  Receipt Date: 20171122
  Transmission Date: 20180321
  Serious: Yes (Other)
  Sender: FDA-Public Use
  Company Number: FR-MERCK KGAA-2034847

PATIENT
  Sex: Female

DRUGS (1)
  1. NOVOTHYROX [Suspect]
     Active Substance: LEVOTHYROXINE SODIUM
     Indication: HYPOTHYROIDISM

REACTIONS (5)
  - Vertigo [Recovered/Resolved]
  - Hyperthyroidism [Recovered/Resolved]
  - Gastrointestinal disorder [Recovered/Resolved]
  - Hypothyroidism [Recovered/Resolved]
  - Blood thyroid stimulating hormone abnormal [Recovered/Resolved]
